FAERS Safety Report 8188259-9 (Version None)
Quarter: 2012Q1

REPORT INFORMATION
  Report Type: 
  Country: None (occurrence: None)
  Receive Date: 20120306
  Receipt Date: 20120227
  Transmission Date: 20120608
  Serious: Yes (Other)
  Sender: FDA-Public Use
  Company Number: US-PFIZER INC-2012019275

PATIENT
  Sex: Male

DRUGS (2)
  1. XALATAN [Suspect]
     Dosage: ONE DROP IN BOTH EYES EVERY EVENING AT BEDTIME
     Route: 047
  2. XALATAN [Suspect]
     Dosage: UNK

REACTIONS (3)
  - RETINAL DETACHMENT [None]
  - GLAUCOMA [None]
  - CATARACT [None]
